FAERS Safety Report 6907739-4 (Version None)
Quarter: 2010Q3

REPORT INFORMATION
  Report Type: 
  Country: None (occurrence: None)
  Receive Date: 20100709
  Receipt Date: 20100317
  Transmission Date: 20110219
  Serious: Yes (Other)
  Sender: FDA-Public Use
  Company Number: 2010030040

PATIENT
  Sex: Female

DRUGS (1)
  1. SOMA [Suspect]
     Dosage: 5 TABLET
     Dates: start: 19900101

REACTIONS (6)
  - DEAFNESS TRANSITORY [None]
  - DRUG DEPENDENCE [None]
  - LOSS OF CONSCIOUSNESS [None]
  - MEDICATION ERROR [None]
  - MUSCLE DISORDER [None]
  - SPEECH DISORDER [None]
